FAERS Safety Report 7587595-4 (Version None)
Quarter: 2011Q3

REPORT INFORMATION
  Report Type: 
  Country: None (occurrence: None)
  Receive Date: 20110704
  Receipt Date: 20110621
  Transmission Date: 20111222
  Serious: Yes (Disabling)
  Sender: FDA-Public Use
  Company Number: PHHY2011TW54635

PATIENT
  Age: 73 Year
  Sex: Female

DRUGS (1)
  1. ZOLEDRONIC ACID [Suspect]
     Indication: OSTEOPOROSIS POSTMENOPAUSAL
     Dosage: 5 MG/100 ML
     Route: 042
     Dates: start: 20100929

REACTIONS (2)
  - APHASIA [None]
  - CEREBROVASCULAR ACCIDENT [None]
